FAERS Safety Report 7989123-8 (Version None)
Quarter: 2011Q4

REPORT INFORMATION
  Report Type: 
  Country: None (occurrence: None)
  Receive Date: 20111219
  Receipt Date: 20111214
  Transmission Date: 20120403
  Serious: Yes (Death)
  Sender: FDA-Public Use
  Company Number: US-JNJFOC-20111200973

PATIENT
  Age: 61 Year
  Sex: Male

DRUGS (1)
  1. REOPRO [Suspect]
     Indication: INFARCTION
     Dosage: 10 MG/ 5 ML, 5 ML
     Route: 040
     Dates: start: 20111112, end: 20111112

REACTIONS (1)
  - CORONARY ARTERY OCCLUSION [None]
